FAERS Safety Report 24014308 (Version 2)
Quarter: 2024Q3

REPORT INFORMATION
  Report Type: Spontaneous
  Country: BR (occurrence: BR)
  Receive Date: 20240626
  Receipt Date: 20240705
  Transmission Date: 20241016
  Serious: Yes (Other)
  Sender: ROCHE
  Company Number: BR-ROCHE-10000000605

PATIENT
  Age: 74 Year
  Sex: Male

DRUGS (1)
  1. ATEZOLIZUMAB [Suspect]
     Active Substance: ATEZOLIZUMAB
     Indication: Lung neoplasm malignant
     Route: 065
     Dates: start: 20221113

REACTIONS (14)
  - Anaemia [Recovered/Resolved]
  - Thrombocytopenia [Recovered/Resolved]
  - Neutropenia [Recovered/Resolved]
  - Asthenia [Unknown]
  - Catheter site haematoma [Unknown]
  - Salivary gland mass [Unknown]
  - Neoplasm progression [Unknown]
  - Microangiopathy [Unknown]
  - Gliosis [Unknown]
  - Lacunar stroke [Unknown]
  - Renal cyst [Unknown]
  - Diverticulum [Unknown]
  - Prostatomegaly [Unknown]
  - Bladder disorder [Unknown]
